FAERS Safety Report 4966056-2 (Version None)
Quarter: 2006Q2

REPORT INFORMATION
  Report Type: 
  Country: None (occurrence: None)
  Receive Date: 20060403
  Receipt Date: 20060322
  Transmission Date: 20061013
  Serious: No
  Sender: FDA-Public Use
  Company Number: 06H-163-0306765-00

PATIENT
  Age: 67 Year
  Sex: Female

DRUGS (3)
  1. BUPIVACAINE HCL [Suspect]
     Indication: ANALGESIC THERAPY
     Dosage: 20 MILLIGRAM/MILLILITERS, PER DAY, INTRATHECAL
     Route: 037
     Dates: start: 20031106, end: 20050101
  2. CLONIDINE [Concomitant]
  3. HYDROMORPHONE HCL [Concomitant]

REACTIONS (15)
  - ASTHENIA [None]
  - BACK PAIN [None]
  - CALCINOSIS [None]
  - DEVICE OCCLUSION [None]
  - FAECAL INCONTINENCE [None]
  - FLANK PAIN [None]
  - HYPOAESTHESIA [None]
  - HYPOREFLEXIA [None]
  - INFLAMMATION [None]
  - MASS [None]
  - SCAR [None]
  - SENSORY LOSS [None]
  - SPINAL CORD COMPRESSION [None]
  - SPINAL CORD NEOPLASM [None]
  - URINARY INCONTINENCE [None]
